FAERS Safety Report 7667979-6 (Version None)
Quarter: 2011Q3

REPORT INFORMATION
  Report Type: 
  Country: None (occurrence: None)
  Receive Date: 20110808
  Receipt Date: 20110801
  Transmission Date: 20111222
  Serious: No
  Sender: FDA-Public Use
  Company Number: US-BIOGENIDEC-2011BI028703

PATIENT
  Age: 41 Year
  Sex: Female

DRUGS (1)
  1. AVONEX [Suspect]
     Indication: MULTIPLE SCLEROSIS
     Route: 030
     Dates: start: 20050104

REACTIONS (5)
  - MULTIPLE SCLEROSIS RELAPSE [None]
  - BAND SENSATION [None]
  - MUSCULOSKELETAL STIFFNESS [None]
  - GROIN PAIN [None]
  - INFLUENZA LIKE ILLNESS [None]
